FAERS Safety Report 15268913 (Version 1)
Quarter: 2018Q3

REPORT INFORMATION
  Report Type: Spontaneous
  Country: US (occurrence: US)
  Receive Date: 20180813
  Receipt Date: 20180813
  Transmission Date: 20181010
  Serious: Yes (Congenital Anomaly)
  Sender: FDA-Public Use
  Company Number: US-ROCHE-830200045001

PATIENT

DRUGS (1)
  1. ACCUTANE [Suspect]
     Active Substance: ISOTRETINOIN
     Indication: ACNE CYSTIC
     Route: 048
     Dates: start: 19820925, end: 19830131

REACTIONS (9)
  - Encephalopathy neonatal [Unknown]
  - Ear malformation [Unknown]
  - Hydrocephalus [Unknown]
  - Dysplasia [Unknown]
  - Deafness [Unknown]
  - Aqueductal stenosis [Unknown]
  - Dysmorphism [Unknown]
  - Psychomotor retardation [Unknown]
  - Optic nerve injury [Unknown]

NARRATIVE: CASE EVENT DATE: 19830609
